FAERS Safety Report 22078138 (Version 3)
Quarter: 2023Q2

REPORT INFORMATION
  Report Type: Report from Study
  Country: HU (occurrence: HU)
  Receive Date: 20230309
  Receipt Date: 20230405
  Transmission Date: 20230722
  Serious: Yes (Death)
  Sender: FDA-Public Use
  Company Number: HU-002147023-NVSC2023HU053538

PATIENT
  Sex: Female

DRUGS (4)
  1. KISQALI [Suspect]
     Active Substance: RIBOCICLIB
     Indication: Metastases to liver
     Dosage: 3 DOSAGE FORM, QD (FOR 21 DAYS THEN A 1 WEEK BREAK)
     Route: 048
     Dates: start: 20230217
  2. KISQALI [Suspect]
     Active Substance: RIBOCICLIB
     Indication: Breast cancer
  3. FAMOS [Concomitant]
     Indication: Metastases to liver
     Dosage: 1 DOSAGE FORM (CONTINUOUSLY)
     Route: 065
  4. FAMOS [Concomitant]
     Indication: Breast cancer

REACTIONS (1)
  - Death [Fatal]

NARRATIVE: CASE EVENT DATE: 20230228
